FAERS Safety Report 13882370 (Version 1)
Quarter: 2017Q3

REPORT INFORMATION
  Report Type: Spontaneous
  Country: US (occurrence: US)
  Receive Date: 20170818
  Receipt Date: 20170818
  Transmission Date: 20171127
  Serious: Yes (Death)
  Sender: FDA-Public Use
  Company Number: US-DEPOMED, INC.-US-2017DEP001605

PATIENT

DRUGS (3)
  1. RELISTOR [Concomitant]
     Active Substance: METHYLNALTREXONE BROMIDE
     Indication: CONSTIPATION
     Dosage: 0.15 MG/KG, QOD, PRN
     Route: 058
  2. LAZANDA [Suspect]
     Active Substance: FENTANYL CITRATE
     Indication: CANCER PAIN
     Dosage: 100 ?G, QID, IN EACH NOSTRIL
     Route: 045
     Dates: start: 20160203, end: 20160508
  3. FENTANYL. [Concomitant]
     Active Substance: FENTANYL
     Indication: PAIN
     Dosage: 50 ?G, EVERY 72 HOURS
     Route: 062
     Dates: start: 20160203, end: 20160508

REACTIONS (1)
  - Pancreatic carcinoma [Fatal]
